FAERS Safety Report 5610697-6 (Version None)
Quarter: 2008Q1

REPORT INFORMATION
  Report Type: 
  Country: None (occurrence: None)
  Receive Date: 20080130
  Receipt Date: 20080130
  Transmission Date: 20080703
  Serious: Yes (Death)
  Sender: FDA-Public Use
  Company Number: None

PATIENT
  Age: 27 Year
  Sex: Male
  Weight: 89.8122 kg

DRUGS (2)
  1. TRAMADOL HCL [Suspect]
     Dosage: 1 TO 2  EVERY 6 HOURS AS N  PO
     Route: 048
     Dates: start: 20050101, end: 20071223
  2. HYDROCODONE BITARTRATE [Suspect]

REACTIONS (7)
  - DRUG DEPENDENCE [None]
  - DRUG PRESCRIBING ERROR [None]
  - FAMILY STRESS [None]
  - IMPAIRED WORK ABILITY [None]
  - MENTAL IMPAIRMENT [None]
  - PERSONALITY CHANGE [None]
  - SOCIAL PROBLEM [None]
